FAERS Safety Report 12214212 (Version 1)
Quarter: 2016Q1

REPORT INFORMATION
  Report Type: Spontaneous
  Country: GB (occurrence: GB)
  Receive Date: 20160328
  Receipt Date: 20160328
  Transmission Date: 20160526
  Serious: Yes (Other)
  Sender: FDA-Public Use
  Company Number: GB-JNJFOC-20160320726

PATIENT
  Age: 50 Year
  Sex: Female

DRUGS (2)
  1. HALDOL [Suspect]
     Active Substance: HALOPERIDOL
     Indication: BIPOLAR DISORDER
     Route: 030
     Dates: start: 20110118
  2. HALDOL [Suspect]
     Active Substance: HALOPERIDOL
     Indication: BIPOLAR DISORDER
     Route: 030
     Dates: start: 20110118

REACTIONS (1)
  - Oestrogen receptor positive breast cancer [Not Recovered/Not Resolved]

NARRATIVE: CASE EVENT DATE: 20151124
